FAERS Safety Report 23752833 (Version 1)
Quarter: 2024Q2

REPORT INFORMATION
  Report Type: Spontaneous
  Country: CA (occurrence: CA)
  Receive Date: 20240417
  Receipt Date: 20240417
  Transmission Date: 20240715
  Serious: Yes (Hospitalization, Other)
  Sender: FDA-Public Use
  Company Number: CA-SANDOZ-SDZ2024CA039201

PATIENT
  Age: 57 Year
  Sex: Male

DRUGS (3)
  1. MYCOPHENOLATE MOFETIL [Suspect]
     Active Substance: MYCOPHENOLATE MOFETIL
     Indication: Morvan syndrome
     Dosage: 1 G, BID
     Route: 048
  2. Immunoglobulin [Concomitant]
     Indication: Morvan syndrome
     Dosage: UNK
     Route: 042
  3. PREDNISONE [Concomitant]
     Active Substance: PREDNISONE
     Indication: Morvan syndrome
     Dosage: 70 MG, QD
     Route: 065

REACTIONS (3)
  - Uveitis [Unknown]
  - Pneumonia [Unknown]
  - Product use in unapproved indication [Unknown]
